FAERS Safety Report 4643579-7 (Version None)
Quarter: 2005Q2

REPORT INFORMATION
  Report Type: 
  Country: None (occurrence: None)
  Receive Date: 20050425
  Receipt Date: 20050225
  Transmission Date: 20051028
  Serious: Yes (Other)
  Sender: FDA-Public Use
  Company Number: US-BOEHRINGER INGELHEIM PHARMMACEUTICALS, INC.-2005-BP-03443BP

PATIENT
  Sex: Male
  Weight: 107.05 kg

DRUGS (1)
  1. PERSANTINE [Suspect]
     Indication: CARDIAC STRESS TEST
     Dosage: 60.1 MG
     Dates: start: 20041214

REACTIONS (3)
  - DIZZINESS [None]
  - NECK PAIN [None]
  - VISION BLURRED [None]
